FAERS Safety Report 18243118 (Version 1)
Quarter: 2020Q3

REPORT INFORMATION
  Report Type: Spontaneous
  Country: US (occurrence: US)
  Receive Date: 20200908
  Receipt Date: 20200908
  Transmission Date: 20201103
  Serious: No
  Sender: FDA-Public Use
  Company Number: None

PATIENT
  Age: 40 Year
  Sex: Male
  Weight: 91.8 kg

DRUGS (6)
  1. OMEPRAZOLE. [Concomitant]
     Active Substance: OMEPRAZOLE
  2. HUMALOG [Concomitant]
     Active Substance: INSULIN LISPRO
  3. CREON [Suspect]
     Active Substance: PANCRELIPASE AMYLASE\PANCRELIPASE LIPASE\PANCRELIPASE PROTEASE
     Indication: PANCREATIC DISORDER
     Dosage: ?          OTHER STRENGTH:USP UNITS;?
     Route: 048
     Dates: start: 20190716, end: 20200831
  4. LISINOPRIL. [Concomitant]
     Active Substance: LISINOPRIL
  5. ATORVASTATIN [Concomitant]
     Active Substance: ATORVASTATIN
  6. TOUJEO [Concomitant]
     Active Substance: INSULIN GLARGINE

REACTIONS (2)
  - Diarrhoea [None]
  - Product quality issue [None]

NARRATIVE: CASE EVENT DATE: 20200820
